FAERS Safety Report 24305389 (Version 1)
Quarter: 2024Q3

REPORT INFORMATION
  Report Type: Spontaneous
  Country: US (occurrence: US)
  Receive Date: 20240911
  Receipt Date: 20240911
  Transmission Date: 20241016
  Serious: Yes (Other)
  Sender: ROCHE
  Company Number: US-ROCHE-10000075416

PATIENT
  Sex: Female

DRUGS (3)
  1. VABYSMO [Suspect]
     Active Substance: FARICIMAB\FARICIMAB-SVOA
     Indication: Diabetic retinal oedema
     Route: 065
  2. EYLEA [Concomitant]
     Active Substance: AFLIBERCEPT
  3. OZURDEX [Concomitant]
     Active Substance: DEXAMETHASONE

REACTIONS (1)
  - Uveitis [Unknown]
